FAERS Safety Report 11401415 (Version 2)
Quarter: 2015Q3

REPORT INFORMATION
  Report Type: Report from Study
  Country: US (occurrence: US)
  Receive Date: 20150820
  Receipt Date: 20150918
  Transmission Date: 20151125
  Serious: Yes (Other)
  Sender: FDA-Public Use
  Company Number: US-AMGEN-USASL2015084095

PATIENT
  Age: 48 Year
  Sex: Female
  Weight: 63.49 kg

DRUGS (5)
  1. MAXZIDE [Concomitant]
     Active Substance: HYDROCHLOROTHIAZIDE\TRIAMTERENE
     Indication: OEDEMA
     Dosage: UNK UNK, AS NECESSARY
     Route: 048
  2. LINZESS [Concomitant]
     Active Substance: LINACLOTIDE
     Indication: CONSTIPATION
     Dosage: UNK UNK, AS NECESSARY
     Route: 048
  3. HUMIRA [Suspect]
     Active Substance: ADALIMUMAB
     Indication: PRODUCT USED FOR UNKNOWN INDICATION
     Dosage: UNK
     Route: 065
  4. TYLENOL [Concomitant]
     Active Substance: ACETAMINOPHEN
     Indication: PAIN
     Dosage: 500 MG, AS NECESSARY
     Route: 048
  5. ENBREL [Suspect]
     Active Substance: ETANERCEPT
     Indication: PSORIATIC ARTHROPATHY
     Dosage: 50 MG, QWK
     Route: 058
     Dates: start: 20150211, end: 20150415

REACTIONS (16)
  - Nausea [Recovered/Resolved]
  - Oropharyngeal pain [Unknown]
  - Insomnia [Recovered/Resolved]
  - Dizziness [Recovered/Resolved]
  - Headache [Recovered/Resolved]
  - Contusion [Recovered/Resolved]
  - Decreased appetite [Recovered/Resolved]
  - Myalgia [Unknown]
  - Neuropathy peripheral [Recovered/Resolved]
  - Vomiting [Recovered/Resolved]
  - Influenza like illness [Unknown]
  - Chest pain [Recovered/Resolved]
  - Systemic lupus erythematosus [Unknown]
  - Arthralgia [Unknown]
  - Abdominal pain upper [Recovered/Resolved]
  - Rash [Recovered/Resolved]

NARRATIVE: CASE EVENT DATE: 2015
